FAERS Safety Report 10976014 (Version 2)
Quarter: 2015Q3

REPORT INFORMATION
  Report Type: Spontaneous
  Country: US (occurrence: US)
  Receive Date: 20150401
  Receipt Date: 20150902
  Transmission Date: 20151125
  Serious: Yes (Hospitalization, Disabling, Other)
  Sender: FDA-Public Use
  Company Number: US-009507513-1503USA014288

PATIENT
  Sex: Male

DRUGS (3)
  1. PROSCAR [Suspect]
     Active Substance: FINASTERIDE
     Indication: PROSTATE INFECTION
     Dosage: 5 MG, QD
     Route: 048
     Dates: start: 200005, end: 200412
  2. FINASTERIDE. [Suspect]
     Active Substance: FINASTERIDE
     Indication: PROSTATE INFECTION
     Dosage: 5 MG, QD
     Route: 048
     Dates: start: 20060925, end: 200908
  3. NEFAZODONE [Concomitant]
     Active Substance: NEFAZODONE
     Indication: DEPRESSION
     Dosage: UNK, UNKNOWN
     Route: 065
     Dates: start: 199908, end: 200410

REACTIONS (14)
  - Cognitive disorder [Not Recovered/Not Resolved]
  - Joint injury [Unknown]
  - Erectile dysfunction [Unknown]
  - Thrombosis [Unknown]
  - Sexual dysfunction [Not Recovered/Not Resolved]
  - Osteoarthritis [Unknown]
  - Prostate cancer [Unknown]
  - Gastrooesophageal reflux disease [Unknown]
  - Loss of libido [Unknown]
  - Anxiety [Not Recovered/Not Resolved]
  - Ejaculation disorder [Unknown]
  - Obsessive-compulsive disorder [Not Recovered/Not Resolved]
  - Inflammation [Unknown]
  - Depression [Not Recovered/Not Resolved]

NARRATIVE: CASE EVENT DATE: 2000
